FAERS Safety Report 9705668 (Version 2)
Quarter: 2013Q4

REPORT INFORMATION
  Report Type: Spontaneous
  Country: US (occurrence: US)
  Receive Date: 20131122
  Receipt Date: 20131122
  Transmission Date: 20140711
  Serious: No
  Sender: FDA-Public Use
  Company Number: US-GILEAD-2008-0017073

PATIENT
  Age: 45 Year
  Sex: Female

DRUGS (2)
  1. LETAIRIS [Suspect]
     Indication: PULMONARY ARTERIAL HYPERTENSION
     Route: 048
  2. HORMONE REPLACEMENT THERAPY [Concomitant]

REACTIONS (3)
  - Blister [None]
  - Abdominal distension [None]
  - Local swelling [None]
